FAERS Safety Report 8110862-2 (Version None)
Quarter: 2012Q1

REPORT INFORMATION
  Report Type: 
  Country: None (occurrence: None)
  Receive Date: 20120201
  Receipt Date: 20120201
  Transmission Date: 20120608
  Serious: Yes (Hospitalization)
  Sender: FDA-Public Use
  Company Number: None

PATIENT
  Age: 76 Year
  Sex: Male
  Weight: 69 kg

DRUGS (1)
  1. LINEZOLID [Suspect]
     Dosage: 600 MG BID PO
     Route: 048
     Dates: start: 20120118, end: 20120130

REACTIONS (4)
  - LEUKOPENIA [None]
  - NAUSEA [None]
  - CELLULITIS [None]
  - VOMITING [None]
